FAERS Safety Report 24187904 (Version 1)
Quarter: 2024Q3

REPORT INFORMATION
  Report Type: Spontaneous
  Country: US (occurrence: US)
  Receive Date: 20240808
  Receipt Date: 20240808
  Transmission Date: 20241017
  Serious: Yes (Life-Threatening, Hospitalization)
  Sender: MACLEODS
  Company Number: US-MACLEODS PHARMA-MAC2024048620

PATIENT

DRUGS (4)
  1. ESCITALOPRAM [Suspect]
     Active Substance: ESCITALOPRAM OXALATE
     Indication: Product used for unknown indication
     Route: 064
  2. CLONAZEPAM [Suspect]
     Active Substance: CLONAZEPAM
     Indication: Product used for unknown indication
     Route: 064
  3. GABAPENTIN [Suspect]
     Active Substance: GABAPENTIN
     Indication: Product used for unknown indication
     Route: 064
  4. METHADONE [Suspect]
     Active Substance: METHADONE HYDROCHLORIDE
     Indication: Product used for unknown indication
     Route: 064

REACTIONS (12)
  - Drug withdrawal syndrome neonatal [Recovered/Resolved]
  - Decreased activity [Recovered/Resolved]
  - Tongue movement disturbance [Recovered/Resolved]
  - Infantile back arching [Recovered/Resolved]
  - Breath holding [Recovered/Resolved]
  - Respiratory distress [Recovered/Resolved]
  - Apnoea [Recovered/Resolved]
  - Hypotonia [Recovered/Resolved]
  - Hypertonia [Recovered/Resolved]
  - Feeling jittery [Recovered/Resolved]
  - Tremor neonatal [Recovered/Resolved]
  - Foetal exposure during pregnancy [Unknown]
